FAERS Safety Report 7999114-9 (Version None)
Quarter: 2011Q4

REPORT INFORMATION
  Report Type: 
  Country: None (occurrence: None)
  Receive Date: 20111216
  Receipt Date: 20111204
  Transmission Date: 20120403
  Serious: Yes (Other)
  Sender: FDA-Public Use
  Company Number: 2011S1000377

PATIENT
  Age: 7 Month
  Sex: Male

DRUGS (4)
  1. LEVALBUTEROL HYDROCHLORIDE [Concomitant]
  2. INOMAX [Suspect]
     Indication: PULMONARY HYPERTENSION
     Dosage: 20 PPM;CONT;INH
     Route: 055
     Dates: start: 20110101
  3. BUDESONIDE [Concomitant]
  4. IPRATROPIUM BROMIDE [Concomitant]

REACTIONS (3)
  - OXYGEN SATURATION DECREASED [None]
  - DEVICE MALFUNCTION [None]
  - BRADYCARDIA [None]
